FAERS Safety Report 17907047 (Version 1)
Quarter: 2020Q2

REPORT INFORMATION
  Report Type: Spontaneous
  Country: US (occurrence: US)
  Receive Date: 20200617
  Receipt Date: 20200617
  Transmission Date: 20200714
  Serious: Yes (Other)
  Sender: FDA-Public Use
  Company Number: US-PFIZER INC-2020042174

PATIENT
  Age: 85 Year
  Sex: Female
  Weight: 78.02 kg

DRUGS (2)
  1. VYNDAQEL [Suspect]
     Active Substance: TAFAMIDIS MEGLUMINE
     Dosage: 80 MG
  2. VYNDAQEL [Suspect]
     Active Substance: TAFAMIDIS MEGLUMINE
     Dosage: 80 MG, 1X/DAY

REACTIONS (5)
  - Dyspnoea [Unknown]
  - Pruritus [Not Recovered/Not Resolved]
  - Swelling [Unknown]
  - Peripheral swelling [Unknown]
  - Abdominal distension [Unknown]
